FAERS Safety Report 5628486-5 (Version None)
Quarter: 2008Q1

REPORT INFORMATION
  Report Type: 
  Country: None (occurrence: None)
  Receive Date: 20080215
  Receipt Date: 20080206
  Transmission Date: 20080703
  Serious: Yes (Other)
  Sender: FDA-Public Use
  Company Number: CA-PFIZER INC-2008008044

PATIENT
  Sex: Female

DRUGS (2)
  1. LIPITOR [Suspect]
     Indication: BLOOD CHOLESTEROL
     Dosage: DAILY DOSE:40MG
     Route: 048
     Dates: start: 20071220, end: 20071222
  2. COVERSYL [Interacting]
     Indication: HYPERTENSION
     Route: 048

REACTIONS (12)
  - ABDOMINAL DISTENSION [None]
  - ANXIETY [None]
  - BLOOD CHOLESTEROL INCREASED [None]
  - DECREASED APPETITE [None]
  - DRUG INTERACTION [None]
  - HEADACHE [None]
  - HYPERTENSION [None]
  - INSOMNIA [None]
  - LEFT VENTRICULAR HYPERTROPHY [None]
  - MUSCLE SPASMS [None]
  - NAUSEA [None]
  - PAIN IN EXTREMITY [None]
